FAERS Safety Report 5765140-3 (Version None)
Quarter: 2008Q2

REPORT INFORMATION
  Report Type: 
  Country: None (occurrence: None)
  Receive Date: 20080611
  Receipt Date: 20080603
  Transmission Date: 20081010
  Serious: Yes (Other)
  Sender: FDA-Public Use
  Company Number: GB-TEVA-172367ISR

PATIENT
  Age: 78 Year

DRUGS (1)
  1. SIMVASTATIN [Suspect]
     Dates: start: 20050101

REACTIONS (2)
  - FATIGUE [None]
  - TRANSIENT ISCHAEMIC ATTACK [None]
